FAERS Safety Report 16624463 (Version 5)
Quarter: 2021Q4

REPORT INFORMATION
  Report Type: Spontaneous
  Country: US (occurrence: US)
  Receive Date: 20190724
  Receipt Date: 20211228
  Transmission Date: 20220304
  Serious: Yes (Other)
  Sender: FDA-Public Use
  Company Number: US-GILEAD-2019-0419353

PATIENT
  Age: 61 Year
  Sex: Male
  Weight: 86.168 kg

DRUGS (11)
  1. VIREAD [Suspect]
     Active Substance: TENOFOVIR DISOPROXIL FUMARATE
     Indication: HIV infection
     Dosage: UNK
     Route: 048
     Dates: start: 2013, end: 2018
  2. VIREAD [Suspect]
     Active Substance: TENOFOVIR DISOPROXIL FUMARATE
     Dosage: UNK
     Route: 048
     Dates: start: 2003, end: 200811
  3. TRUVADA [Suspect]
     Active Substance: EMTRICITABINE\TENOFOVIR DISOPROXIL FUMARATE
     Indication: HIV infection
     Dosage: UNK
     Route: 048
     Dates: start: 20081129, end: 20160810
  4. TRUVADA [Suspect]
     Active Substance: EMTRICITABINE\TENOFOVIR DISOPROXIL FUMARATE
     Dosage: UNK
     Route: 065
     Dates: start: 20080228, end: 20080704
  5. DESCOVY [Concomitant]
     Active Substance: EMTRICITABINE\TENOFOVIR ALAFENAMIDE FUMARATE
  6. ACETAMINOPHEN [Concomitant]
     Active Substance: ACETAMINOPHEN
  7. AMOXICILLIN [Concomitant]
     Active Substance: AMOXICILLIN
  8. ASPIRIN [Concomitant]
     Active Substance: ASPIRIN
  9. MORNIFLUMATE [Concomitant]
     Active Substance: MORNIFLUMATE
  10. TIVICAY [Concomitant]
     Active Substance: DOLUTEGRAVIR SODIUM
  11. IBUPROFEN [Concomitant]
     Active Substance: IBUPROFEN

REACTIONS (10)
  - Renal injury [Not Recovered/Not Resolved]
  - Osteoporosis [Not Recovered/Not Resolved]
  - Chronic kidney disease [Unknown]
  - Renal failure [Unknown]
  - Bone demineralisation [Not Recovered/Not Resolved]
  - Osteopenia [Unknown]
  - Emotional distress [Unknown]
  - Blood creatine increased [Unknown]
  - Pain [Unknown]
  - Renal impairment [Not Recovered/Not Resolved]

NARRATIVE: CASE EVENT DATE: 20180101
